FAERS Safety Report 12347641 (Version 1)
Quarter: 2016Q2

REPORT INFORMATION
  Report Type: Spontaneous
  Country: FR (occurrence: FR)
  Receive Date: 20160509
  Receipt Date: 20160509
  Transmission Date: 20160815
  Serious: Yes (Hospitalization)
  Sender: FDA-Public Use
  Company Number: FR-PFIZER INC-2016144946

PATIENT
  Age: 51 Year
  Sex: Female
  Weight: 48 kg

DRUGS (1)
  1. XALKORI [Suspect]
     Active Substance: CRIZOTINIB
     Indication: LUNG ADENOCARCINOMA
     Dosage: 200 MG, 2X/DAY (1 CAPSULE MORNING AND EVENING)
     Route: 048
     Dates: start: 20160126, end: 20160412

REACTIONS (17)
  - Asthenia [Recovering/Resolving]
  - Anaemia [Recovering/Resolving]
  - Hyponatraemia [Recovering/Resolving]
  - Photopsia [Recovering/Resolving]
  - Lung adenocarcinoma [Unknown]
  - Chromatopsia [Recovering/Resolving]
  - Disease progression [Unknown]
  - Muscular weakness [Recovering/Resolving]
  - General physical health deterioration [Recovering/Resolving]
  - Decreased appetite [Recovering/Resolving]
  - Weight decreased [Recovering/Resolving]
  - Balance disorder [Recovering/Resolving]
  - Vomiting [Recovering/Resolving]
  - Dyspepsia [Recovering/Resolving]
  - Nausea [Recovering/Resolving]
  - Burn oesophageal [Recovering/Resolving]
  - Diarrhoea [Recovering/Resolving]

NARRATIVE: CASE EVENT DATE: 20160226
